FAERS Safety Report 9158278 (Version 1)
Quarter: 2013Q1

REPORT INFORMATION
  Report Type: Spontaneous
  Country: US (occurrence: US)
  Receive Date: 20130312
  Receipt Date: 20130312
  Transmission Date: 20140127
  Serious: Yes (Death)
  Sender: FDA-Public Use
  Company Number: US-ASTRAZENECA-2013SE16114

PATIENT
  Sex: 0

DRUGS (3)
  1. LIDOCAINE [Suspect]
     Route: 061
  2. TETRACAINE [Suspect]
     Route: 061
  3. PHENYLEPHRINE [Suspect]
     Route: 061

REACTIONS (1)
  - Toxicity to various agents [Fatal]
